FAERS Safety Report 6396588-4 (Version None)
Quarter: 2009Q4

REPORT INFORMATION
  Report Type: 
  Country: None (occurrence: None)
  Receive Date: 20091008
  Receipt Date: 20091008
  Transmission Date: 20100525
  Serious: Yes (Hospitalization)
  Sender: FDA-Public Use
  Company Number: None

PATIENT
  Sex: Male
  Weight: 69.2 kg

DRUGS (2)
  1. PEMETREXED [Suspect]
     Indication: PROSTATE CANCER
     Dosage: 500 MG/M^2 Q 21 D IV
     Route: 042
     Dates: start: 20090407, end: 20090811
  2. OXALIPLATIN [Suspect]
     Indication: PROSTATE CANCER
     Dosage: 120 MG/M^2 Q 21 D IV
     Route: 042
     Dates: start: 20090407, end: 20090811

REACTIONS (3)
  - CHEST PAIN [None]
  - DYSPNOEA [None]
  - PLEURAL EFFUSION [None]
